FAERS Safety Report 8480502-1 (Version None)
Quarter: 2012Q3

REPORT INFORMATION
  Report Type: 
  Country: None (occurrence: None)
  Receive Date: 20120702
  Receipt Date: 20120621
  Transmission Date: 20120928
  Serious: No
  Sender: FDA-Public Use
  Company Number: US-BIOGENIDEC-2012BI018368

PATIENT
  Sex: Female

DRUGS (1)
  1. TYSABRI [Suspect]
     Indication: MULTIPLE SCLEROSIS
     Route: 042
     Dates: start: 20091211, end: 20120613

REACTIONS (5)
  - FATIGUE [None]
  - SINUS DISORDER [None]
  - COUGH [None]
  - SINUS CONGESTION [None]
  - VIRAL INFECTION [None]
